FAERS Safety Report 6972331-2 (Version None)
Quarter: 2010Q3

REPORT INFORMATION
  Report Type: 
  Country: None (occurrence: None)
  Receive Date: 20100909
  Receipt Date: 20100831
  Transmission Date: 20110219
  Serious: Yes (Other)
  Sender: FDA-Public Use
  Company Number: PHHY2010CO56872

PATIENT
  Sex: Female

DRUGS (3)
  1. GENTEAL (NVO) [Suspect]
     Route: 047
  2. FRESHLOOK COLORBLENDS [Suspect]
  3. AOPSET PLUS [Suspect]

REACTIONS (2)
  - BLINDNESS TRANSIENT [None]
  - RETINAL INJURY [None]
